FAERS Safety Report 15640829 (Version 1)
Quarter: 2018Q4

REPORT INFORMATION
  Report Type: Spontaneous
  Country: SK (occurrence: SK)
  Receive Date: 20181120
  Receipt Date: 20181120
  Transmission Date: 20190205
  Serious: Yes (Death, Other)
  Sender: FDA-Public Use
  Company Number: SK-BAYER-2018-212193

PATIENT
  Sex: Male

DRUGS (1)
  1. XOFIGO [Suspect]
     Active Substance: RADIUM RA-223 DICHLORIDE
     Indication: PROSTATE CANCER
     Dosage: UNK
     Dates: start: 201805

REACTIONS (7)
  - Anaemia [None]
  - Asthenia [Fatal]
  - Leukopenia [None]
  - Thrombocytopenia [None]
  - Bone pain [None]
  - Weight decreased [None]
  - Diarrhoea [None]
